FAERS Safety Report 7759355-2 (Version None)
Quarter: 2011Q3

REPORT INFORMATION
  Report Type: 
  Country: None (occurrence: None)
  Receive Date: 20110919
  Receipt Date: 20110907
  Transmission Date: 20111222
  Serious: No
  Sender: FDA-Public Use
  Company Number: US-JNJFOC-20110905187

PATIENT
  Sex: Male
  Weight: 74.84 kg

DRUGS (9)
  1. NORTRIPTYLINE HCL [Concomitant]
     Indication: SLEEP DISORDER
     Route: 048
  2. LYRICA [Concomitant]
     Indication: ARTHROPATHY
     Route: 048
  3. DIAZEPAM [Concomitant]
     Indication: ANXIETY
     Route: 048
  4. OXYCODONE HCL [Concomitant]
     Indication: PAIN
     Route: 048
  5. EXCEDRIN NOS [Concomitant]
     Indication: MIGRAINE
     Route: 048
  6. BENAZEPRIL HYDROCHLORIDE [Concomitant]
     Indication: BLOOD PRESSURE
     Dosage: 20/25
     Route: 048
  7. FLUOXETINE [Concomitant]
     Route: 048
  8. FENTANYL-100 [Suspect]
     Indication: PAIN
     Route: 062
     Dates: start: 20110901
  9. ZOLPIDEM [Concomitant]
     Indication: SLEEP DISORDER
     Route: 048

REACTIONS (2)
  - PRODUCT ADHESION ISSUE [None]
  - WRONG TECHNIQUE IN DRUG USAGE PROCESS [None]
